FAERS Safety Report 7709285-7 (Version None)
Quarter: 2011Q3

REPORT INFORMATION
  Report Type: 
  Country: None (occurrence: None)
  Receive Date: 20110825
  Receipt Date: 20110822
  Transmission Date: 20111222
  Serious: Yes (Death, Hospitalization)
  Sender: FDA-Public Use
  Company Number: PHHY2011AU54016

PATIENT
  Sex: Male

DRUGS (4)
  1. PHENYTOIN [Concomitant]
     Dosage: 300 MG, DAILY
     Route: 042
     Dates: start: 20110616, end: 20110618
  2. BENZTROPINE MESYLATE [Concomitant]
     Dosage: 1 MG, BD
     Route: 048
  3. VALPROATE SODIUM [Concomitant]
     Dosage: 700 MG, BD
     Route: 048
  4. CLOZAPINE [Suspect]
     Dosage: 250 MG
     Dates: start: 20000706

REACTIONS (20)
  - BRADYCARDIA [None]
  - URINARY TRACT INFECTION [None]
  - PLATELET COUNT DECREASED [None]
  - HAEMATOCRIT DECREASED [None]
  - EOSINOPHIL COUNT DECREASED [None]
  - LYMPHOCYTE COUNT DECREASED [None]
  - HYPONATRAEMIA [None]
  - RETICULOCYTE COUNT DECREASED [None]
  - WHITE BLOOD CELL COUNT INCREASED [None]
  - NEUTROPHIL COUNT INCREASED [None]
  - RED BLOOD CELL COUNT DECREASED [None]
  - VENTRICULAR FIBRILLATION [None]
  - HYPOTHERMIA [None]
  - HAEMOGLOBIN DECREASED [None]
  - PNEUMONIA [None]
  - BASOPHIL COUNT INCREASED [None]
  - RED CELL DISTRIBUTION WIDTH INCREASED [None]
  - HYPERNATRAEMIA [None]
  - HYPOTENSION [None]
  - DEHYDRATION [None]
